FAERS Safety Report 23748540 (Version 1)
Quarter: 2024Q2

REPORT INFORMATION
  Report Type: Spontaneous
  Country: US (occurrence: US)
  Receive Date: 20240416
  Receipt Date: 20240416
  Transmission Date: 20240716
  Serious: Yes (Other)
  Sender: FDA-Public Use
  Company Number: US-TEVA-VS-3175270

PATIENT
  Age: 11 Year
  Sex: Female

DRUGS (1)
  1. EPINEPHRINE [Suspect]
     Active Substance: EPINEPHRINE
     Indication: Pharyngeal swelling
     Dosage: 0.3 MG / 0.3 ML
     Route: 065
     Dates: start: 20240321

REACTIONS (3)
  - Device malfunction [Unknown]
  - Device issue [Unknown]
  - Device extrusion [Unknown]

NARRATIVE: CASE EVENT DATE: 20240321
